FAERS Safety Report 8539716-4 (Version None)
Quarter: 2012Q3

REPORT INFORMATION
  Report Type: 
  Country: None (occurrence: None)
  Receive Date: 20120726
  Receipt Date: 20120404
  Transmission Date: 20120928
  Serious: No
  Sender: FDA-Public Use
  Company Number: US-ASTRAZENECA-2008UW03276

PATIENT
  Age: 71 Year
  Sex: Female
  Weight: 70.3 kg

DRUGS (17)
  1. SEROQUEL [Suspect]
     Route: 048
  2. SEROQUEL [Suspect]
     Route: 048
  3. SEROQUEL [Suspect]
     Route: 048
  4. SEROQUEL [Suspect]
     Route: 048
  5. SEROQUEL [Suspect]
     Route: 048
  6. SEROQUEL [Suspect]
     Route: 048
  7. SEROQUEL [Suspect]
     Route: 048
  8. LUNESTA [Suspect]
     Route: 065
  9. LUNESTA [Suspect]
     Route: 065
     Dates: start: 20070101
  10. ENALAPRIL MALEATE [Concomitant]
     Indication: HYPERTENSION
     Route: 065
  11. SEROQUEL [Suspect]
     Route: 048
  12. SEROQUEL [Suspect]
     Indication: INSOMNIA
     Route: 048
     Dates: start: 20060101
  13. SEROQUEL [Suspect]
     Indication: DEPRESSION
     Route: 048
     Dates: start: 20060101
  14. SEROQUEL [Suspect]
     Indication: SLEEP DISORDER
     Route: 048
     Dates: start: 20060101
  15. SEROQUEL [Suspect]
     Route: 048
  16. ENALAPRIL MALEATE [Concomitant]
     Indication: BLOOD PRESSURE
     Route: 065
  17. ATENOLOL [Concomitant]
     Indication: HYPERTENSION
     Route: 048

REACTIONS (13)
  - INTENTIONAL DRUG MISUSE [None]
  - PLATELET COUNT INCREASED [None]
  - ABNORMAL DREAMS [None]
  - FATIGUE [None]
  - WEIGHT INCREASED [None]
  - INSOMNIA [None]
  - SOMNOLENCE [None]
  - DEPRESSED MOOD [None]
  - THROAT IRRITATION [None]
  - FEELING ABNORMAL [None]
  - FALL [None]
  - WRONG TECHNIQUE IN DRUG USAGE PROCESS [None]
  - OFF LABEL USE [None]
